FAERS Safety Report 15444994 (Version 1)
Quarter: 2018Q3

REPORT INFORMATION
  Report Type: Spontaneous
  Country: US (occurrence: US)
  Receive Date: 20180928
  Receipt Date: 20180928
  Transmission Date: 20181010
  Serious: No
  Sender: FDA-Public Use
  Company Number: US-AMGEN-USASP2018054697

PATIENT
  Age: 79 Year
  Sex: Female
  Weight: 78.46 kg

DRUGS (1)
  1. PROLIA [Suspect]
     Active Substance: DENOSUMAB
     Indication: OSTEOPOROSIS
     Dosage: 60 MG, Q6MO
     Route: 058
     Dates: start: 2014

REACTIONS (8)
  - Dyspnoea [Unknown]
  - Generalised erythema [Unknown]
  - Rash [Not Recovered/Not Resolved]
  - Pain in extremity [Unknown]
  - Depression [Unknown]
  - Pruritus [Unknown]
  - Fatigue [Unknown]
  - Eczema [Unknown]

NARRATIVE: CASE EVENT DATE: 201804
